FAERS Safety Report 6106859-4 (Version None)
Quarter: 2009Q1

REPORT INFORMATION
  Report Type: 
  Country: None (occurrence: None)
  Receive Date: 20090303
  Receipt Date: 20090226
  Transmission Date: 20090719
  Serious: Yes (Hospitalization)
  Sender: FDA-Public Use
  Company Number: GXKR2009DE02407

PATIENT
  Age: 68 Year
  Sex: Male
  Weight: 79 kg

DRUGS (7)
  1. ASS 100 HEXAL         (NGX) (ACETYLSALICYLIC ACID) [Suspect]
     Indication: CORONARY ARTERY DISEASE
     Dosage: 100 MG, QD, ORAL
     Route: 048
     Dates: start: 20080101, end: 20080908
  2. FALITHROM (NGX)          (PHENPROCOUMON) FILM-COATED TABLET [Suspect]
     Indication: ATRIAL FIBRILLATION
     Dosage: 3 MG, QD, ORAL
     Route: 048
     Dates: start: 20080501, end: 20080904
  3. AMLODIPINE [Concomitant]
  4. METOPROLOL SUCCINATE [Concomitant]
  5. GLYBURIDE [Concomitant]
  6. PANTOPRAZOLE SODIUM [Concomitant]
  7. SIMVASTATIN [Concomitant]

REACTIONS (1)
  - HAEMATURIA [None]
